FAERS Safety Report 19503758 (Version 3)
Quarter: 2021Q3

REPORT INFORMATION
  Report Type: Spontaneous
  Country: PL (occurrence: PL)
  Receive Date: 20210707
  Receipt Date: 20210906
  Transmission Date: 20211014
  Serious: Yes (Other)
  Sender: FDA-Public Use
  Company Number: PL-PFIZER INC-2021558719

PATIENT
  Age: 2 Year
  Sex: Female
  Weight: 11.16 kg

DRUGS (4)
  1. UNASYN [Suspect]
     Active Substance: AMPICILLIN SODIUM\SULBACTAM SODIUM
     Dosage: UNK
     Dates: start: 20210226
  2. COLECALCIFEROL [Concomitant]
     Active Substance: CHOLECALCIFEROL
     Dosage: UNK
  3. FURAGINUM [Concomitant]
     Active Substance: FURAZIDINE
     Dosage: UNK
  4. DICOPEG JUNIOR [Concomitant]
     Dosage: UNK

REACTIONS (5)
  - Pyrexia [Unknown]
  - Vomiting [Unknown]
  - Drug eruption [Recovered/Resolved]
  - Diarrhoea [Unknown]
  - Gastrointestinal infection [Recovered/Resolved]

NARRATIVE: CASE EVENT DATE: 20210304
